FAERS Safety Report 8175806-6 (Version None)
Quarter: 2012Q1

REPORT INFORMATION
  Report Type: 
  Country: None (occurrence: None)
  Receive Date: 20120228
  Receipt Date: 20120228
  Transmission Date: 20120608
  Serious: Yes (Death)
  Sender: FDA-Public Use
  Company Number: None

PATIENT
  Age: 75 Year
  Sex: Male

DRUGS (6)
  1. ATENOLOL [Concomitant]
  2. ALBUTEROL [Concomitant]
  3. AMLODIPINE [Concomitant]
  4. SCOPLAMINE [Concomitant]
  5. REVLIMID [Suspect]
     Indication: MULTIPLE MYELOMA
     Dosage: 25MG DAILY ORALLY
     Route: 048
     Dates: start: 20110301, end: 20110601
  6. ACYCLOVIR [Concomitant]

REACTIONS (2)
  - MULTIPLE MYELOMA [None]
  - DISEASE PROGRESSION [None]
